FAERS Safety Report 16210766 (Version 2)
Quarter: 2019Q2

REPORT INFORMATION
  Report Type: Spontaneous
  Country: JP (occurrence: JP)
  Receive Date: 20190418
  Receipt Date: 20190602
  Transmission Date: 20190711
  Serious: Yes (Death, Other)
  Sender: FDA-Public Use
  Company Number: JP-TAKEDA-2019TJP007404

PATIENT
  Age: 84 Year
  Sex: Female
  Weight: 48.1 kg

DRUGS (22)
  1. NINLARO [Suspect]
     Active Substance: IXAZOMIB CITRATE
     Dosage: 3 MILLIGRAM, 1/WEEK
     Route: 048
     Dates: start: 20190306, end: 20190306
  2. PIARLE [Concomitant]
     Dosage: UNK
     Route: 065
     Dates: end: 20190326
  3. SAMTIREL [Concomitant]
     Active Substance: ATOVAQUONE
     Dosage: UNK
     Route: 065
     Dates: start: 20190306
  4. K-SUPPLY [Concomitant]
     Active Substance: POTASSIUM CHLORIDE
     Dosage: UNK
     Route: 065
     Dates: start: 20190313, end: 20190319
  5. ASPARA-CA [Concomitant]
     Active Substance: CALCIUM ASPARTATE
     Dosage: UNK
     Route: 065
     Dates: start: 20190303, end: 20190319
  6. TOFRANIL [Concomitant]
     Active Substance: IMIPRAMINE HYDROCHLORIDE
     Dosage: UNK
     Route: 065
     Dates: end: 20190319
  7. FEXOFENADINE HYDROCHLORIDE. [Concomitant]
     Active Substance: FEXOFENADINE HYDROCHLORIDE
     Dosage: UNK
     Route: 065
     Dates: end: 20190319
  8. URSODEOXYCHOLIC ACID [Concomitant]
     Active Substance: URSODIOL
     Dosage: UNK
     Route: 065
     Dates: end: 20190319
  9. VICCLOX                            /00587301/ [Concomitant]
     Active Substance: ACYCLOVIR SODIUM
     Dosage: UNK
     Route: 065
  10. NINLARO [Suspect]
     Active Substance: IXAZOMIB CITRATE
     Indication: PLASMA CELL MYELOMA
     Dosage: UNK
     Route: 048
     Dates: start: 20190206
  11. NEXIUM [Concomitant]
     Active Substance: ESOMEPRAZOLE MAGNESIUM
     Dosage: UNK
     Route: 065
     Dates: end: 20190319
  12. CALFINA [Concomitant]
     Active Substance: ALFACALCIDOL
     Dosage: UNK
     Route: 065
     Dates: start: 20190303, end: 20190319
  13. DENOTAS [Concomitant]
     Active Substance: CALCIUM CARBONATE\CHOLECALCIFEROL\MAGNESIUM CARBONATE
     Dosage: UNK
     Route: 065
     Dates: end: 20190319
  14. FUNGUARD [Concomitant]
     Active Substance: MICAFUNGIN SODIUM
     Dosage: UNK
     Route: 065
     Dates: start: 20190224, end: 20190320
  15. NINLARO [Suspect]
     Active Substance: IXAZOMIB CITRATE
     Dosage: 4 MILLIGRAM, 1/WEEK
     Route: 048
     Dates: start: 20190313, end: 20190313
  16. VANCOMYCIN HYDROCHLORIDE. [Suspect]
     Active Substance: VANCOMYCIN HYDROCHLORIDE
     Indication: PRODUCT USED FOR UNKNOWN INDICATION
     Dosage: 200 MILLIGRAM, QD
     Route: 041
     Dates: start: 20190308, end: 20190318
  17. REVLIMID [Suspect]
     Active Substance: LENALIDOMIDE
     Indication: PLASMA CELL MYELOMA
     Dosage: 5 MILLIGRAM, QD
     Route: 048
     Dates: start: 20190206, end: 20190319
  18. SENNOSIDE A+B [Concomitant]
     Active Substance: SENNOSIDES A AND B
     Dosage: UNK
     Route: 065
     Dates: end: 20190319
  19. AMITIZA [Concomitant]
     Active Substance: LUBIPROSTONE
     Dosage: UNK
     Route: 065
     Dates: end: 20190326
  20. MEROPENEM                          /01250502/ [Concomitant]
     Active Substance: MEROPENEM
     Dosage: UNK
     Route: 065
     Dates: start: 20190303, end: 20190325
  21. LENADEX [Concomitant]
     Active Substance: DEXAMETHASONE ACETATE
     Indication: PLASMA CELL MYELOMA
     Dosage: UNK
     Route: 048
     Dates: start: 20190206, end: 20190313
  22. JANUVIA [Concomitant]
     Active Substance: SITAGLIPTIN PHOSPHATE
     Dosage: UNK
     Route: 065

REACTIONS (3)
  - Sepsis [Fatal]
  - Pruritus [Fatal]
  - Stevens-Johnson syndrome [Fatal]

NARRATIVE: CASE EVENT DATE: 20190228
